FAERS Safety Report 18644070 (Version 1)
Quarter: 2020Q4

REPORT INFORMATION
  Report Type: Spontaneous
  Country: US (occurrence: US)
  Receive Date: 20201221
  Receipt Date: 20201221
  Transmission Date: 20210114
  Serious: Yes (Other)
  Sender: FDA-Public Use
  Company Number: US-PURDUE-USA-2020-0172395

PATIENT
  Sex: Male
  Weight: 175 kg

DRUGS (6)
  1. OXYCODONE HCL TABLETS (RHODES 91-490) [Suspect]
     Active Substance: OXYCODONE HYDROCHLORIDE
     Indication: PAIN
     Dosage: UNKNOWN
     Route: 048
     Dates: start: 1999, end: 201010
  2. OXYCODONE/ ACETAMINOPHEN TABLETS [Suspect]
     Active Substance: ACETAMINOPHEN\OXYCODONE HYDROCHLORIDE
     Indication: PAIN
     Dosage: UNKNOWN
     Route: 048
     Dates: start: 1999, end: 201010
  3. OXYFAST [Suspect]
     Active Substance: OXYCODONE
     Indication: PAIN
     Dosage: UNKNOWN
     Route: 065
     Dates: start: 1999, end: 201010
  4. XANAX [Suspect]
     Active Substance: ALPRAZOLAM
     Indication: PRODUCT USED FOR UNKNOWN INDICATION
     Dosage: UNKNOWN
     Route: 065
  5. OXYCONTIN [Suspect]
     Active Substance: OXYCODONE HYDROCHLORIDE
     Indication: PAIN
     Dosage: UNKNOWN
     Route: 048
     Dates: start: 2001, end: 201010
  6. HYDROCODONE BITARTRATE AND ACETAMINOPHEN [Suspect]
     Active Substance: ACETAMINOPHEN\HYDROCODONE BITARTRATE
     Indication: PAIN
     Dosage: UNKNOWN
     Route: 048
     Dates: start: 1999, end: 201010

REACTIONS (5)
  - Surgery [Unknown]
  - Drug dependence [Recovered/Resolved]
  - Post-traumatic stress disorder [Unknown]
  - Pain [Unknown]
  - Emotional distress [Unknown]

NARRATIVE: CASE EVENT DATE: 1999
